FAERS Safety Report 8025688-8 (Version None)
Quarter: 2012Q1

REPORT INFORMATION
  Report Type: 
  Country: None (occurrence: None)
  Receive Date: 20120105
  Receipt Date: 20111227
  Transmission Date: 20120608
  Serious: Yes (Hospitalization)
  Sender: FDA-Public Use
  Company Number: CN-ASTRAZENECA-2011SE78314

PATIENT
  Age: 74 Year
  Sex: Female

DRUGS (2)
  1. NEXIUM [Suspect]
     Indication: GASTRIC PH DECREASED
     Route: 048
     Dates: start: 20100101
  2. NEXIUM [Suspect]
     Indication: ABDOMINAL DISCOMFORT
     Route: 048
     Dates: start: 20100101

REACTIONS (3)
  - AGEUSIA [None]
  - DECREASED APPETITE [None]
  - WEIGHT DECREASED [None]
